FAERS Safety Report 5302808-7 (Version None)
Quarter: 2007Q1

REPORT INFORMATION
  Report Type: 
  Country: None (occurrence: None)
  Receive Date: 20070201
  Receipt Date: 20061128
  Transmission Date: 20070707
  Serious: No
  Sender: FDA-Public Use
  Company Number: 2006PV025931

PATIENT
  Sex: Female

DRUGS (6)
  1. BYETTA [Suspect]
     Indication: DRUG USE FOR UNKNOWN INDICATION
     Dosage: 5 MCG;BID;SC
     Route: 058
     Dates: start: 20061027
  2. PYRIDOSTIGMINE BROMIDE [Suspect]
     Indication: MYASTHENIA GRAVIS
     Dates: end: 20060101
  3. PYRIDOSTIGMINE BROMIDE [Suspect]
     Indication: MYASTHENIA GRAVIS
     Dates: start: 20060101
  4. HUMALOG [Concomitant]
  5. HUMULIN 70/30 [Concomitant]
  6. COREG [Concomitant]

REACTIONS (5)
  - ABDOMINAL PAIN UPPER [None]
  - COLONIC POLYP [None]
  - MYASTHENIA GRAVIS [None]
  - NAUSEA [None]
  - WEIGHT DECREASED [None]
